FAERS Safety Report 4825812-1 (Version None)
Quarter: 2005Q4

REPORT INFORMATION
  Report Type: 
  Country: None (occurrence: None)
  Receive Date: 20051111
  Receipt Date: 20040116
  Transmission Date: 20060501
  Serious: Yes (Hospitalization)
  Sender: FDA-Public Use
  Company Number: JP-JNJFOC-20040100943

PATIENT
  Sex: Male
  Weight: 62.7 kg

DRUGS (13)
  1. REMICADE [Suspect]
     Route: 041
  2. REMICADE [Suspect]
     Route: 041
  3. REMICADE [Suspect]
     Route: 041
  4. REMICADE [Suspect]
     Route: 041
  5. REMICADE [Suspect]
     Indication: RHEUMATOID ARTHRITIS
     Route: 041
  6. METHOTREXATE [Concomitant]
     Route: 065
  7. METHOTREXATE [Concomitant]
     Route: 065
  8. METHOTREXATE [Concomitant]
     Route: 065
  9. PREDONIN [Concomitant]
     Route: 048
     Dates: start: 19990630
  10. VOLTAREN [Concomitant]
     Route: 054
     Dates: start: 20030527
  11. LOXONIN [Concomitant]
     Route: 048
     Dates: start: 20010418
  12. SELBEX [Concomitant]
     Route: 048
     Dates: start: 20010418
  13. ZANTAC [Concomitant]
     Route: 048
     Dates: start: 20010418

REACTIONS (1)
  - ANAPHYLACTIC SHOCK [None]
